FAERS Safety Report 10101170 (Version 2)
Quarter: 2014Q2

REPORT INFORMATION
  Report Type: Spontaneous
  Country: US (occurrence: US)
  Receive Date: 20140424
  Receipt Date: 20140429
  Transmission Date: 20141212
  Serious: Yes (Life-Threatening, Other)
  Sender: FDA-Public Use
  Company Number: US-009507513-1404USA010520

PATIENT
  Sex: Female

DRUGS (4)
  1. VICTRELIS [Suspect]
     Indication: CHRONIC HEPATITIS C
     Dosage: (4) 200 MG, THREE TIMES DAILY
     Route: 048
     Dates: start: 201312, end: 2014
  2. PEGASYS [Suspect]
     Dosage: UNK
     Dates: end: 2014
  3. RIBASPHERE [Suspect]
     Dosage: UNK
     Dates: end: 2014
  4. ULTRACET [Concomitant]
     Dosage: UNK

REACTIONS (1)
  - Cerebrovascular accident [Unknown]
